FAERS Safety Report 5635960-4 (Version None)
Quarter: 2008Q1

REPORT INFORMATION
  Report Type: 
  Country: None (occurrence: None)
  Receive Date: 20080224
  Receipt Date: 20080215
  Transmission Date: 20080703
  Serious: Yes (Other)
  Sender: FDA-Public Use
  Company Number: PHHY2008JP01870

PATIENT
  Age: 15 Year

DRUGS (2)
  1. NEORAL [Suspect]
     Indication: NEPHROTIC SYNDROME
     Dosage: 100 MG/DAY
     Route: 048
     Dates: start: 20080101, end: 20080201
  2. PROGRAF [Concomitant]
     Indication: NEPHROTIC SYNDROME
     Dates: end: 20080101

REACTIONS (1)
  - PANCYTOPENIA [None]
